FAERS Safety Report 6315942-X (Version None)
Quarter: 2009Q3

REPORT INFORMATION
  Report Type: 
  Country: None (occurrence: None)
  Receive Date: 20090820
  Receipt Date: 20080729
  Transmission Date: 20100115
  Serious: No
  Sender: FDA-Public Use
  Company Number: US-KINGPHARMUSA00001-K200800902

PATIENT
  Sex: Female
  Weight: 62.132 kg

DRUGS (3)
  1. CYTOMEL [Suspect]
     Indication: AUTOIMMUNE THYROIDITIS
     Dosage: 25 MCG IN AM, 12.5 MCG AT NOON, 12.5 MCG IN PM
     Route: 048
     Dates: start: 20080301
  2. ESTRADIOL [Concomitant]
     Indication: MENOPAUSE
     Dosage: UNK, QD
  3. PROGESTERON [Concomitant]
     Indication: MENOPAUSE
     Dosage: UNK, QD

REACTIONS (3)
  - HEADACHE [None]
  - INTESTINAL FUNCTIONAL DISORDER [None]
  - PHARYNGEAL OEDEMA [None]
